FAERS Safety Report 15821426 (Version 4)
Quarter: 2019Q2

REPORT INFORMATION
  Report Type: Report from Study
  Country: ZA (occurrence: ZA)
  Receive Date: 20190114
  Receipt Date: 20190503
  Transmission Date: 20190711
  Serious: Yes (Hospitalization)
  Sender: FDA-Public Use
  Company Number: ZA-SA-2019SA006948

PATIENT
  Age: 78 Year
  Sex: Male

DRUGS (7)
  1. ADCO ZETOMAX [Concomitant]
     Dosage: 20 MG, QD
     Dates: start: 20181023
  2. PURICOS [Concomitant]
     Active Substance: ALLOPURINOL
     Dosage: 300 MG, QD
     Dates: start: 20181023
  3. GLUCOPHAGE [Concomitant]
     Active Substance: METFORMIN HYDROCHLORIDE
     Dosage: 1000 MG, BID (BEFORE SUPPER AND BEFORE BREAKFAST)
     Dates: start: 20181023
  4. TOUJEO [Suspect]
     Active Substance: INSULIN GLARGINE
     Dosage: 16 U, HS (AT BEDTIME)
     Dates: start: 20181009
  5. ESCITALOPRAM [Concomitant]
     Active Substance: ESCITALOPRAM OXALATE
     Dosage: 5 MG, QD
     Dates: start: 20181023
  6. AMLOC [AMLODIPINE BESILATE] [Concomitant]
     Active Substance: AMLODIPINE BESYLATE
     Dosage: 5 MG, QD
     Dates: start: 20181023
  7. INSULIN GLULISINE [Suspect]
     Active Substance: INSULIN GLULISINE
     Dosage: BEFORE SUPPER- 10 UNITS, BEFORE BREAKFAST- 8 UNITS,BEFORE LUNCH-8 UNITS
     Dates: start: 20181009

REACTIONS (7)
  - Head banging [Recovered/Resolved]
  - Feeling cold [Not Recovered/Not Resolved]
  - Glycosylated haemoglobin increased [Unknown]
  - Fall [Unknown]
  - Concussion [Unknown]
  - Fall [Unknown]
  - Concussion [Recovered/Resolved]

NARRATIVE: CASE EVENT DATE: 20181206
